FAERS Safety Report 7936474-9 (Version None)
Quarter: 2011Q4

REPORT INFORMATION
  Report Type: 
  Country: None (occurrence: None)
  Receive Date: 20111123
  Receipt Date: 20111115
  Transmission Date: 20120403
  Serious: Yes (Other)
  Sender: FDA-Public Use
  Company Number: DE-MEDIMMUNE-MEDI-0013944

PATIENT
  Sex: Male

DRUGS (2)
  1. SYNAGIS [Suspect]
     Route: 030
     Dates: start: 20110101, end: 20110101
  2. SYNAGIS [Suspect]
     Route: 030
     Dates: start: 20100101, end: 20100101

REACTIONS (1)
  - ASTHENIA [None]
